FAERS Safety Report 8900830 (Version 1)
Quarter: 2012Q4

REPORT INFORMATION
  Report Type: 
  Country: CA (occurrence: CA)
  Receive Date: 20121109
  Receipt Date: 20121109
  Transmission Date: 20130627
  Serious: Yes (Hospitalization, Other)
  Sender: FDA-Public Use
  Company Number: PHMT2006CA01554

PATIENT
  Sex: Male

DRUGS (1)
  1. SANDOSTATIN LAR [Suspect]
     Indication: ACROMEGALY
     Dosage: 30 mg , every 4 weeks
     Dates: start: 19990901

REACTIONS (8)
  - Peritonitis [Recovered/Resolved]
  - Pyrexia [Recovered/Resolved]
  - Vascular procedure complication [Unknown]
  - Renal failure [Unknown]
  - Blood pressure systolic increased [Unknown]
  - Injection site pain [Unknown]
  - Blood glucose increased [Unknown]
  - Heart rate decreased [Unknown]
